FAERS Safety Report 5203812-X (Version None)
Quarter: 2007Q1

REPORT INFORMATION
  Report Type: 
  Country: None (occurrence: None)
  Receive Date: 20070110
  Receipt Date: 20070105
  Transmission Date: 20070707
  Serious: Yes (Other)
  Sender: FDA-Public Use
  Company Number: US-BRISTOL-MYERS SQUIBB COMPANY-13492277

PATIENT
  Age: 78 Year
  Sex: Female

DRUGS (3)
  1. ESTRACE [Suspect]
     Indication: MENOPAUSAL SYMPTOMS
     Dates: start: 19790101, end: 20030101
  2. PREMARIN [Suspect]
     Indication: MENOPAUSAL SYMPTOMS
     Dates: start: 19790101, end: 20030101
  3. ESTRADIOL [Suspect]
     Indication: MENOPAUSAL SYMPTOMS
     Dates: start: 19790101, end: 20030101

REACTIONS (1)
  - BREAST CANCER [None]
